FAERS Safety Report 6381060-8 (Version None)
Quarter: 2009Q3

REPORT INFORMATION
  Report Type: 
  Country: None (occurrence: None)
  Receive Date: 20090924
  Receipt Date: 20090921
  Transmission Date: 20100115
  Serious: Yes (Other)
  Sender: FDA-Public Use
  Company Number: 2009SP026273

PATIENT
  Age: 42 Year
  Sex: Female

DRUGS (11)
  1. POSACONAZOLE [Suspect]
     Indication: DRUG USE FOR UNKNOWN INDICATION
     Dates: start: 20090709, end: 20090714
  2. VORICONAZOLE [Suspect]
     Indication: DRUG USE FOR UNKNOWN INDICATION
     Dates: start: 20090629, end: 20090708
  3. ALENDRONIC ACID (CON.) [Concomitant]
  4. AZITHROMYCIN (CON.) [Concomitant]
  5. CO-TRIMOXAZOLE (CON.) [Concomitant]
  6. CYCLIZINE (CON.) [Concomitant]
  7. HYDROCORTISONE (CON.) [Concomitant]
  8. OMEPRAZOLE (CON.) [Concomitant]
  9. SERTALINE (CON.) [Concomitant]
  10. TACROLIMUS (CON.) [Concomitant]
  11. WARFARIN (CON.) [Concomitant]

REACTIONS (4)
  - DRUG INEFFECTIVE [None]
  - ENCEPHALITIS [None]
  - ENCEPHALOPATHY [None]
  - LIVER DISORDER [None]
